FAERS Safety Report 9230119 (Version 1)
Quarter: 2013Q2

REPORT INFORMATION
  Report Type: Spontaneous
  Country: US (occurrence: None)
  Receive Date: 20130412
  Receipt Date: 20130412
  Transmission Date: 20140414
  Serious: Yes (Hospitalization)
  Sender: FDA-Public Use
  Company Number: None

PATIENT
  Age: 48 Year
  Sex: Female
  Weight: 81.4 kg

DRUGS (2)
  1. LYSTEDA [Suspect]
     Indication: MENORRHAGIA
     Route: 048
  2. XARELTA [Concomitant]

REACTIONS (3)
  - Deep vein thrombosis [None]
  - Oedema peripheral [None]
  - Pain in extremity [None]
